FAERS Safety Report 7562912-X (Version None)
Quarter: 2011Q2

REPORT INFORMATION
  Report Type: 
  Country: None (occurrence: None)
  Receive Date: 20110525
  Receipt Date: 20110428
  Transmission Date: 20111010
  Serious: No
  Sender: FDA-Public Use
  Company Number: 326381

PATIENT
  Age: 63 Year
  Sex: Female

DRUGS (2)
  1. VICTOZA [Suspect]
     Indication: TYPE 2 DIABETES MELLITUS
     Dosage: 0.6 MG, 1.2 MG, 0.6 MG, SUBCUTANEOUS
     Route: 058
  2. VICTOZA [Suspect]
     Dosage: 0.6 MG, QD, SUBCUTANEOUS
     Route: 058

REACTIONS (1)
  - HYPERSENSITIVITY [None]
